FAERS Safety Report 7397592-X (Version None)
Quarter: 2011Q2

REPORT INFORMATION
  Report Type: 
  Country: None (occurrence: None)
  Receive Date: 20110406
  Receipt Date: 20110331
  Transmission Date: 20111010
  Serious: Yes (Other)
  Sender: FDA-Public Use
  Company Number: FR-MERCK-1104FRA00011

PATIENT
  Sex: Female

DRUGS (1)
  1. EMEND [Suspect]
     Route: 048

REACTIONS (1)
  - CYTOLYTIC HEPATITIS [None]
